FAERS Safety Report 13486011 (Version 2)
Quarter: 2017Q2

REPORT INFORMATION
  Report Type: Report from Study
  Country: CA (occurrence: CA)
  Receive Date: 20170426
  Receipt Date: 20170522
  Transmission Date: 20170830
  Serious: Yes (Other)
  Sender: FDA-Public Use
  Company Number: PHHY2015CA103813

PATIENT
  Age: 20 Year
  Sex: Female

DRUGS (2)
  1. SANDOSTATIN LAR DEPOT [Suspect]
     Active Substance: OCTREOTIDE ACETATE
     Indication: METASTATIC CARCINOID TUMOUR
     Dosage: 30 MG, QMO (ONCE A MONTH)
     Route: 030
     Dates: start: 20150424
  2. AFINITOR [Suspect]
     Active Substance: EVEROLIMUS
     Indication: PRODUCT USED FOR UNKNOWN INDICATION
     Dosage: 10 MG, QD
     Route: 048

REACTIONS (21)
  - Cough [Not Recovered/Not Resolved]
  - Malignant neoplasm progression [Unknown]
  - Seizure [Unknown]
  - Headache [Recovered/Resolved]
  - Alopecia [Recovering/Resolving]
  - Nasal congestion [Not Recovered/Not Resolved]
  - Blood pressure decreased [Unknown]
  - Vision blurred [Unknown]
  - Blood pressure diastolic increased [Unknown]
  - Nasal congestion [Recovered/Resolved]
  - Nausea [Recovered/Resolved]
  - Metastases to breast [Unknown]
  - Rhinorrhoea [Unknown]
  - Dizziness [Recovered/Resolved]
  - Viral upper respiratory tract infection [Unknown]
  - Nausea [Unknown]
  - Oropharyngeal pain [Recovered/Resolved]
  - Diarrhoea [Unknown]
  - Palpitations [Unknown]
  - Erythema [Unknown]
  - Syringe issue [Unknown]

NARRATIVE: CASE EVENT DATE: 2015
